FAERS Safety Report 8721667 (Version 2)
Quarter: 2014Q2

REPORT INFORMATION
  Report Type: Other
  Country: BR (occurrence: BR)
  Receive Date: 20120814
  Receipt Date: 20140428
  Transmission Date: 20141212
  Serious: Yes (Other)
  Sender: FDA-Public Use
  Company Number: BR-SHIRE-SPV1-2012-00539

PATIENT
  Age: 6 Year
  Sex: Male
  Weight: 20.4 kg

DRUGS (7)
  1. ELAPRASE [Suspect]
     Indication: MUCOPOLYSACCHARIDOSIS II
     Dosage: 2 DF, 1X/WEEK
     Route: 041
     Dates: start: 20120530
  2. ELAPRASE [Suspect]
     Dosage: 2 DF, 1X/WEEK
     Route: 041
     Dates: start: 20100530
  3. ELAPRASE [Suspect]
     Dosage: 0.5 MG/KG, UNKNOWN
     Route: 041
     Dates: start: 20120329
  4. ELAPRASE [Suspect]
     Dosage: 2 DF, 1X/WEEK
     Route: 041
     Dates: start: 20120606
  5. ELAPRASE [Suspect]
     Dosage: UNK, UNKNOWN
     Route: 041
     Dates: start: 20120627
  6. ELAPRASE [Suspect]
     Dosage: UNK, UNKNOWN
     Route: 041
     Dates: start: 20120801
  7. SELENIUM [Concomitant]
     Indication: HYPOVITAMINOSIS
     Dosage: 1 ML, 1X/DAY:QD
     Route: 065

REACTIONS (7)
  - Chills [Recovered/Resolved]
  - Pyrexia [Not Recovered/Not Resolved]
  - Feeling cold [Recovered/Resolved]
  - Tremor [Recovered/Resolved]
  - Cough [Not Recovered/Not Resolved]
  - Headache [Recovering/Resolving]
  - Infusion related reaction [Recovered/Resolved]
